FAERS Safety Report 25443517 (Version 1)
Quarter: 2025Q2

REPORT INFORMATION
  Report Type: Report from Study
  Country: IT (occurrence: IT)
  Receive Date: 20250617
  Receipt Date: 20250617
  Transmission Date: 20250717
  Serious: Yes (Other)
  Sender: AUROBINDO
  Company Number: IT-ORPHANEU-2025003631

PATIENT
  Age: 6 Year
  Sex: Female

DRUGS (16)
  1. CARBOPLATIN [Suspect]
     Active Substance: CARBOPLATIN
     Indication: Nephroblastoma
     Route: 065
  2. DACTINOMYCIN [Suspect]
     Active Substance: DACTINOMYCIN
     Indication: Nephroblastoma
  3. DACTINOMYCIN [Suspect]
     Active Substance: DACTINOMYCIN
  4. DACTINOMYCIN [Suspect]
     Active Substance: DACTINOMYCIN
  5. DACTINOMYCIN [Suspect]
     Active Substance: DACTINOMYCIN
  6. VINCRISTINE [Suspect]
     Active Substance: VINCRISTINE
     Indication: Nephroblastoma
     Route: 065
  7. VINCRISTINE [Suspect]
     Active Substance: VINCRISTINE
     Route: 065
  8. VINCRISTINE [Suspect]
     Active Substance: VINCRISTINE
     Route: 065
  9. VINCRISTINE [Suspect]
     Active Substance: VINCRISTINE
     Route: 065
  10. ADRIAMYCIN [Suspect]
     Active Substance: DOXORUBICIN HYDROCHLORIDE
     Indication: Nephroblastoma
     Route: 065
  11. ADRIAMYCIN [Suspect]
     Active Substance: DOXORUBICIN HYDROCHLORIDE
     Route: 065
  12. IFOSFAMIDE [Suspect]
     Active Substance: IFOSFAMIDE
     Indication: Nephroblastoma
  13. IFOSFAMIDE [Suspect]
     Active Substance: IFOSFAMIDE
     Route: 065
  14. ETOPOSIDE [Suspect]
     Active Substance: ETOPOSIDE
     Indication: Nephroblastoma
     Route: 065
  15. TOPOTECAN [Suspect]
     Active Substance: TOPOTECAN HYDROCHLORIDE
     Indication: Nephroblastoma
     Route: 065
  16. TEMOZOLOMIDE [Suspect]
     Active Substance: TEMOZOLOMIDE
     Indication: Nephroblastoma
     Route: 065

REACTIONS (3)
  - Cardiac disorder [Unknown]
  - Tumour rupture [Recovered/Resolved]
  - Haemoperitoneum [Recovered/Resolved]
